FAERS Safety Report 8576146-3 (Version None)
Quarter: 2012Q3

REPORT INFORMATION
  Report Type: 
  Country: None (occurrence: None)
  Receive Date: 20120807
  Receipt Date: 20120729
  Transmission Date: 20120928
  Serious: Yes (Other)
  Sender: FDA-Public Use
  Company Number: DE-JNJFOC-20120702129

PATIENT
  Sex: Male
  Weight: 79 kg

DRUGS (5)
  1. XARELTO [Suspect]
     Indication: PRODUCT USED FOR UNKNOWN INDICATION
     Route: 048
     Dates: start: 20120201
  2. ALLOPURINOL [Concomitant]
  3. MICARDIS [Concomitant]
  4. MARCUMAR [Concomitant]
  5. METOPROLOL TARTRATE [Concomitant]

REACTIONS (3)
  - STOMATITIS NECROTISING [None]
  - LIP HAEMORRHAGE [None]
  - MOUTH ULCERATION [None]
